FAERS Safety Report 11831846 (Version 1)
Quarter: 2015Q4

REPORT INFORMATION
  Report Type: Spontaneous
  Country: US (occurrence: None)
  Receive Date: 20151211
  Receipt Date: 20151211
  Transmission Date: 20160305
  Serious: Yes (Hospitalization)
  Sender: FDA-Public Use
  Company Number: None

PATIENT
  Age: 33 Year
  Sex: Male

DRUGS (7)
  1. KEFLEX [Concomitant]
     Active Substance: CEPHALEXIN
  2. CYMBALTA [Concomitant]
     Active Substance: DULOXETINE HYDROCHLORIDE
  3. CAMPRAL [Concomitant]
     Active Substance: ACAMPROSATE CALCIUM
  4. DISULFIRAM. [Suspect]
     Active Substance: DISULFIRAM
     Dates: start: 20140818, end: 20140912
  5. LOSARTAN. [Concomitant]
     Active Substance: LOSARTAN
  6. BUPROPION. [Concomitant]
     Active Substance: BUPROPION
  7. NEURONTIN [Concomitant]
     Active Substance: GABAPENTIN

REACTIONS (6)
  - Hepatic steatosis [None]
  - Nausea [None]
  - Gallbladder disorder [None]
  - Abdominal pain [None]
  - Cholelithiasis [None]
  - Drug-induced liver injury [None]

NARRATIVE: CASE EVENT DATE: 20140910
